FAERS Safety Report 12757883 (Version 3)
Quarter: 2019Q1

REPORT INFORMATION
  Report Type: Spontaneous
  Country: US (occurrence: US)
  Receive Date: 20160919
  Receipt Date: 20190320
  Transmission Date: 20190417
  Serious: No
  Sender: FDA-Public Use
  Company Number: US-PFIZER INC-2016431701

PATIENT
  Age: 59 Year
  Sex: Female

DRUGS (17)
  1. IBUPRO [Concomitant]
     Indication: PAIN
     Dosage: 800 MG, 3X/DAY
     Dates: end: 20161003
  2. FISH OIL OMEGA 3 [Concomitant]
     Active Substance: FISH OIL
     Indication: ROUTINE HEALTH MAINTENANCE
     Dosage: 1 DF, 1X/DAY [FISH OIL 1200 MG]/[ OM-3^S 600 MG]
  3. NASACORT [Concomitant]
     Active Substance: TRIAMCINOLONE ACETONIDE
     Indication: DRUG HYPERSENSITIVITY
     Dosage: UNK, 1X/DAY (2/SIDE/PM)
  4. ESTROVEN STRESS PLUS MOOD + MEMORY [Concomitant]
     Indication: HOT FLUSH
     Dosage: UNK (1/2 X A DAY; WHAT I TAKE: AM, PM)
  5. MELATONIN ER [Concomitant]
     Indication: HOT FLUSH
     Dosage: 10 MG, 1X/DAY (WHAT I TAKE: PM)
  6. PROVENTIL HFA [Concomitant]
     Active Substance: ALBUTEROL SULFATE
     Indication: ASTHMA
     Dosage: UNK, AS NEEDED (AS NEEDED EVERY 4 HRS)
  7. PREMARIN [Concomitant]
     Active Substance: ESTROGENS, CONJUGATED
     Indication: MENOPAUSE
     Dosage: 0.3 MG, 1X/DAY (1/PM)
  8. GLUCOS/CHOND MSM [Concomitant]
     Indication: ARTHROPATHY
     Dosage: 3000 MG, 1X/DAY (DOSAGE PRESCRIBED: 2/PM)
  9. BENADRYL [Concomitant]
     Active Substance: DIPHENHYDRAMINE HYDROCHLORIDE
     Indication: SLEEP DISORDER
     Dosage: 25MG, 1-2/PM
  10. ESTRADIOL. [Concomitant]
     Active Substance: ESTRADIOL
     Indication: HOT FLUSH
     Dosage: 0.05 MG, 1X/DAY (1 TWICE A WEEK)
  11. LYRICA [Suspect]
     Active Substance: PREGABALIN
     Indication: NEURALGIA
     Dosage: 150 MG, 3X/DAY
     Dates: start: 200609
  12. LEVOTHYROXIN [Concomitant]
     Active Substance: LEVOTHYROXINE
     Indication: THYROID DISORDER
     Dosage: 25 UG, 1X/DAY (WHAT I TAKE: AM)
  13. ENOXAPARIN [Concomitant]
     Active Substance: ENOXAPARIN
     Indication: SURGERY
     Dosage: 40 MG, 1X/DAY
  14. VITAMIN E [Concomitant]
     Active Substance: .ALPHA.-TOCOPHEROL
     Indication: HOT FLUSH
     Dosage: 1000 IU, 1X/DAY (1/AM)
  15. CEFTRIAXONE. [Concomitant]
     Active Substance: CEFTRIAXONE
     Indication: INFECTION
     Dosage: 2 G, 1X/DAY
  16. CLONIDINE HCL [Concomitant]
     Active Substance: CLONIDINE HYDROCHLORIDE
     Indication: HOT FLUSH
     Dosage: 0.1 MG, UNK  (1/2 A DAY; WHAT I TAKE: MID, PM)
  17. VITAMIN D3 [Concomitant]
     Active Substance: CHOLECALCIFEROL
     Indication: ROUTINE HEALTH MAINTENANCE
     Dosage: 5000 IU, 1X/DAY (1/AM)

REACTIONS (5)
  - Drug ineffective [Recovered/Resolved]
  - Nasopharyngitis [Recovered/Resolved]
  - Hot flush [Recovered/Resolved]
  - Insomnia [Recovered/Resolved]
  - Discomfort [Recovered/Resolved]

NARRATIVE: CASE EVENT DATE: 20160910
